FAERS Safety Report 8019447-X (Version None)
Quarter: 2012Q1

REPORT INFORMATION
  Report Type: 
  Country: None (occurrence: None)
  Receive Date: 20120103
  Receipt Date: 20111228
  Transmission Date: 20120608
  Serious: Yes (Other)
  Sender: FDA-Public Use
  Company Number: PHEH2011US012691

PATIENT
  Sex: Male
  Weight: 101.59 kg

DRUGS (6)
  1. ZOLOFT [Concomitant]
  2. TRICOR [Concomitant]
  3. LYRICA [Concomitant]
  4. EXTAVIA [Suspect]
     Indication: MYELITIS
     Dosage: 1 ML, QOD
     Route: 058
  5. NOVOLOG [Concomitant]
  6. ZOCOR [Concomitant]

REACTIONS (9)
  - ARTHRALGIA [None]
  - DEPRESSION [None]
  - DIABETES MELLITUS [None]
  - BALANCE DISORDER [None]
  - MUSCLE SPASMS [None]
  - HYPOAESTHESIA [None]
  - MUSCULAR WEAKNESS [None]
  - ANXIETY [None]
  - PAIN [None]
